FAERS Safety Report 19030161 (Version 2)
Quarter: 2021Q2

REPORT INFORMATION
  Report Type: Spontaneous
  Country: TR (occurrence: TR)
  Receive Date: 20210319
  Receipt Date: 20210405
  Transmission Date: 20210717
  Serious: Yes (Other)
  Sender: FDA-Public Use
  Company Number: TR-JNJFOC-20210321827

PATIENT
  Age: 30 Year
  Sex: Male

DRUGS (3)
  1. XEPLION [Suspect]
     Active Substance: PALIPERIDONE PALMITATE
     Route: 030
     Dates: start: 201504
  2. XEPLION [Suspect]
     Active Substance: PALIPERIDONE PALMITATE
     Indication: SCHIZOPHRENIA
     Route: 030
     Dates: start: 201404
  3. XEPLION [Suspect]
     Active Substance: PALIPERIDONE PALMITATE
     Route: 030
     Dates: start: 201510

REACTIONS (8)
  - Weight increased [Recovering/Resolving]
  - Lethargy [Recovering/Resolving]
  - Persecutory delusion [Unknown]
  - Inappropriate schedule of product administration [Unknown]
  - Blood prolactin increased [Unknown]
  - Lipoma of breast [Unknown]
  - Hallucination, auditory [Unknown]
  - Alcohol use [Unknown]
